FAERS Safety Report 16929801 (Version 1)
Quarter: 2019Q4

REPORT INFORMATION
  Report Type: Spontaneous
  Country: US (occurrence: US)
  Receive Date: 20191017
  Receipt Date: 20191017
  Transmission Date: 20200122
  Serious: Yes (Hospitalization)
  Sender: FDA-Public Use
  Company Number: None

PATIENT
  Age: 64 Year
  Weight: 113 kg

DRUGS (4)
  1. INVOKANA [Suspect]
     Active Substance: CANAGLIFLOZIN
     Indication: TYPE 2 DIABETES MELLITUS
     Route: 048
     Dates: start: 20170101, end: 20191014
  2. VICTOZA [Concomitant]
     Active Substance: LIRAGLUTIDE
     Dates: start: 20170101, end: 20191017
  3. METFORMIN [Concomitant]
     Active Substance: METFORMIN HYDROCHLORIDE
     Dates: start: 20160101, end: 20191017
  4. BASAGLAR [Concomitant]
     Active Substance: INSULIN GLARGINE
     Dates: start: 20170101, end: 20191017

REACTIONS (2)
  - Sepsis [None]
  - Pyelonephritis [None]

NARRATIVE: CASE EVENT DATE: 20191013
